FAERS Safety Report 16385076 (Version 1)
Quarter: 2019Q2

REPORT INFORMATION
  Report Type: Spontaneous
  Country: CA (occurrence: CA)
  Receive Date: 20190603
  Receipt Date: 20190603
  Transmission Date: 20190711
  Serious: Yes (Other)
  Sender: FDA-Public Use
  Company Number: CA-TEVA-2019-CA-1057781

PATIENT
  Age: 62 Year
  Sex: Female

DRUGS (1)
  1. VALSARTAN. [Suspect]
     Active Substance: VALSARTAN
     Indication: HYPERTENSION
     Dosage: 80 MILLIGRAM DAILY;
     Route: 048

REACTIONS (5)
  - Nephrectomy [Unknown]
  - Renal cell carcinoma [Unknown]
  - Cutaneous T-cell lymphoma [Unknown]
  - Carcinogenicity [Unknown]
  - Product contamination [Unknown]
